FAERS Safety Report 7862000-9 (Version None)
Quarter: 2011Q4

REPORT INFORMATION
  Report Type: 
  Country: None (occurrence: None)
  Receive Date: 20111027
  Receipt Date: 20111014
  Transmission Date: 20120403
  Serious: Yes (Hospitalization)
  Sender: FDA-Public Use
  Company Number: IT-NOVEN-11IT003444

PATIENT
  Sex: Female

DRUGS (4)
  1. TICLOPIDINE HYDROCHLORIDE [Concomitant]
     Indication: PRODUCT USED FOR UNKNOWN INDICATION
     Dosage: 250 MG, UNKNOWN
     Route: 065
     Dates: start: 20030626, end: 20111005
  2. PAROXETINE HCL [Suspect]
     Indication: DEPRESSION
     Dosage: UNK
     Route: 048
     Dates: start: 20110226, end: 20110930
  3. SEROQUEL [Suspect]
     Indication: AGITATION
     Dosage: 200 MG, QD
     Route: 048
     Dates: start: 20110930, end: 20111005
  4. SIMVASTATIN [Concomitant]
     Indication: PRODUCT USED FOR UNKNOWN INDICATION
     Dosage: 20 MG, UNKNOWN
     Route: 048
     Dates: start: 20110510, end: 20111005

REACTIONS (1)
  - EPILEPSY [None]
